FAERS Safety Report 7237396-1 (Version None)
Quarter: 2011Q1

REPORT INFORMATION
  Report Type: 
  Country: None (occurrence: None)
  Receive Date: 20110121
  Receipt Date: 20110119
  Transmission Date: 20110831
  Serious: Yes (Hospitalization)
  Sender: FDA-Public Use
  Company Number: GB-PFIZER INC-2010137851

PATIENT
  Age: 64 Year
  Sex: Male

DRUGS (3)
  1. OMEPRAZOLE [Concomitant]
     Dosage: 40 MG, 1X/DAY
     Route: 048
  2. CO-CODAMOL [Concomitant]
     Dosage: 2 DF, 4X/DAY
     Route: 048
  3. SERTRALINE HCL [Suspect]
     Dosage: 50 MG, 1X/DAY
     Route: 048
     Dates: end: 20101012

REACTIONS (4)
  - PEPTIC ULCER HAEMORRHAGE [None]
  - HELICOBACTER INFECTION [None]
  - PEPTIC ULCER [None]
  - CHOLECYSTITIS [None]
